FAERS Safety Report 5209952-3 (Version None)
Quarter: 2006Q4

REPORT INFORMATION
  Report Type: 
  Country: None (occurrence: None)
  Receive Date: 20061127
  Receipt Date: 20060920
  Transmission Date: 20070319
  Serious: Yes (Hospitalization)
  Sender: FDA-Public Use
  Company Number: 2006BH013439

PATIENT
  Age: 13 Year
  Sex: Male

DRUGS (1)
  1. DIANEAL [Suspect]
     Indication: RENAL FAILURE CHRONIC
     Dosage: 6 L;UNK;IP
     Route: 033
     Dates: end: 20060921

REACTIONS (2)
  - PERITONITIS BACTERIAL [None]
  - STAPHYLOCOCCAL INFECTION [None]
